FAERS Safety Report 8887207 (Version 5)
Quarter: 2013Q3

REPORT INFORMATION
  Report Type: Spontaneous
  Country: US (occurrence: US)
  Receive Date: 20121105
  Receipt Date: 20130910
  Transmission Date: 20140515
  Serious: Yes (Hospitalization, Disabling, Other)
  Sender: FDA-Public Use
  Company Number: US-009507513-1211USA001670

PATIENT
  Sex: Female

DRUGS (6)
  1. FOSAMAX [Suspect]
     Indication: OSTEOPOROSIS
     Dosage: 70 MG, QW
     Route: 048
     Dates: start: 200006, end: 200308
  2. FOSAMAX [Suspect]
     Dosage: 70 MG, QW
     Route: 048
     Dates: start: 200405, end: 200507
  3. FOSAMAX [Suspect]
     Indication: OSTEOPOROSIS
     Route: 048
  4. FOSAMAX [Suspect]
     Indication: OSTEOPOROSIS PROPHYLAXIS
  5. ACTONEL [Suspect]
     Indication: OSTEOPOROSIS
     Dosage: 35 MG, QW
     Route: 048
     Dates: start: 200308, end: 200405
  6. MIACALCIN [Concomitant]
     Indication: OSTEOPOROSIS

REACTIONS (20)
  - Femur fracture [Not Recovered/Not Resolved]
  - Internal fixation of fracture [Unknown]
  - Low turnover osteopathy [Unknown]
  - Steroid therapy [Unknown]
  - Hypertension [Unknown]
  - Hyperlipidaemia [Unknown]
  - Diabetes mellitus [Unknown]
  - Rheumatoid arthritis [Unknown]
  - Irritable bowel syndrome [Unknown]
  - Spinal osteoarthritis [Unknown]
  - Nerve root compression [Unknown]
  - Extrasystoles [Unknown]
  - Osteopenia [Unknown]
  - Blood glucose increased [Unknown]
  - Osteoarthritis [Unknown]
  - Cough [Unknown]
  - Osteoarthritis [Unknown]
  - Rheumatoid factor increased [Unknown]
  - Nodal osteoarthritis [Unknown]
  - Arthropathy [Unknown]
